FAERS Safety Report 12708226 (Version 3)
Quarter: 2016Q3

REPORT INFORMATION
  Report Type: Spontaneous
  Country: DE (occurrence: DE)
  Receive Date: 20160901
  Receipt Date: 20160921
  Transmission Date: 20161109
  Serious: Yes (Disabling, Other)
  Sender: FDA-Public Use
  Company Number: GB-BIOMARINAP-DE-2016-110872

PATIENT
  Age: 14 Year
  Sex: Female
  Weight: 42 kg

DRUGS (2)
  1. VIMIZIM [Suspect]
     Active Substance: ELOSULFASE ALFA
     Indication: MUCOPOLYSACCHARIDOSIS VI
     Dosage: 85 MG, QW
     Route: 065
     Dates: start: 20160503
  2. CETIRIZINE [Concomitant]
     Active Substance: CETIRIZINE HYDROCHLORIDE
     Indication: PRODUCT USED FOR UNKNOWN INDICATION
     Dosage: 10 MG, QW

REACTIONS (3)
  - Pain in extremity [Not Recovered/Not Resolved]
  - Osteochondritis [Not Recovered/Not Resolved]
  - Oedema peripheral [Not Recovered/Not Resolved]

NARRATIVE: CASE EVENT DATE: 20160819
